FAERS Safety Report 21640703 (Version 3)
Quarter: 2023Q2

REPORT INFORMATION
  Report Type: Report from Study
  Country: US (occurrence: US)
  Receive Date: 20221124
  Receipt Date: 20230424
  Transmission Date: 20230722
  Serious: Yes (Hospitalization, Other)
  Sender: FDA-Public Use
  Company Number: US-ACADIA PHARMACEUTICALS INC.-ACA-2022-PIM-003796

PATIENT
  Sex: Female

DRUGS (35)
  1. NUPLAZID [Suspect]
     Active Substance: PIMAVANSERIN TARTRATE
     Indication: Parkinson^s disease psychosis
     Dosage: 34 MILLIGRAM, QD
     Route: 048
     Dates: start: 20221007
  2. NUPLAZID [Suspect]
     Active Substance: PIMAVANSERIN TARTRATE
     Indication: Parkinson^s disease
  3. AMIODARONE [Concomitant]
     Active Substance: AMIODARONE
  4. BUSPAR [Concomitant]
     Active Substance: BUSPIRONE HYDROCHLORIDE
     Dosage: 15 MILLIGRAM
  5. CALCIUM\VITAMIN D [Concomitant]
     Active Substance: CALCIUM\VITAMIN D
  6. CARBIDOPA\LEVODOPA [Concomitant]
     Active Substance: CARBIDOPA\LEVODOPA
  7. CYMBALTA [Concomitant]
     Active Substance: DULOXETINE HYDROCHLORIDE
     Dosage: 60 MILLIGRAM
  8. EMPAGLIFLOZIN [Concomitant]
     Active Substance: EMPAGLIFLOZIN
  9. FERROUS SULFATE [Concomitant]
     Active Substance: FERROUS SULFATE
     Dosage: 325 MILLIGRAM
  10. FUROSEMIDE [Concomitant]
     Active Substance: FUROSEMIDE
  11. LACTOBACILLUS RHAMNOSUS [Concomitant]
     Active Substance: LACTOBACILLUS RHAMNOSUS
  12. COZAAR [Concomitant]
     Active Substance: LOSARTAN POTASSIUM
     Dosage: 25 MILLIGRAM
  13. METOPROLOL SUCCINATE [Concomitant]
     Active Substance: METOPROLOL SUCCINATE
  14. OMEPRAZOLE [Concomitant]
     Active Substance: OMEPRAZOLE
  15. ONDANSETRON [Concomitant]
     Active Substance: ONDANSETRON
  16. MIRALAX [Concomitant]
     Active Substance: POLYETHYLENE GLYCOL 3350
  17. PRAVASTATIN [Concomitant]
     Active Substance: PRAVASTATIN
  18. SEROQUEL [Concomitant]
     Active Substance: QUETIAPINE FUMARATE
  19. XARELTO [Concomitant]
     Active Substance: RIVAROXABAN
     Dosage: 70 MILLIGRAM
  20. EXELON [Concomitant]
     Active Substance: RIVASTIGMINE TARTRATE
     Dosage: 1.5 MG
  21. ALDACTONE [Concomitant]
     Active Substance: SPIRONOLACTONE
     Dosage: 25 MILLIGRAM
  22. JARDIANCE [Concomitant]
     Active Substance: EMPAGLIFLOZIN
     Dosage: 10 MILLIGRAM
  23. SINEMET [Concomitant]
     Active Substance: CARBIDOPA\LEVODOPA
     Dosage: 25/100
  24. RYTARY [Concomitant]
     Active Substance: CARBIDOPA\LEVODOPA
     Dosage: 61.25/245
  25. PACERONE [Concomitant]
     Active Substance: AMIODARONE HYDROCHLORIDE
     Dosage: 200 MILLIGRAM
  26. TOPROL XL [Concomitant]
     Active Substance: METOPROLOL SUCCINATE
     Dosage: 25 MILLIGRAM
  27. PRILOSEC [Concomitant]
     Active Substance: OMEPRAZOLE MAGNESIUM
     Dosage: 70 MILLIGRAM
  28. LASIX [Concomitant]
     Active Substance: FUROSEMIDE
     Dosage: 40 MILLIGRAM
  29. CARBIDOPA [Concomitant]
     Active Substance: CARBIDOPA
  30. BUSPIRONE [Concomitant]
     Active Substance: BUSPIRONE HYDROCHLORIDE
  31. PROBIOTICS NOS [Concomitant]
     Active Substance: PROBIOTICS NOS
  32. FIBER [Concomitant]
  33. VITAMINS NOS [Concomitant]
     Active Substance: VITAMINS
  34. LOSARTAN [Concomitant]
     Active Substance: LOSARTAN
  35. OSCAL [CALCITRIOL] [Concomitant]

REACTIONS (7)
  - Cardiac failure congestive [Unknown]
  - COVID-19 [Unknown]
  - Urinary tract infection [Unknown]
  - Abdominal distension [Not Recovered/Not Resolved]
  - Dysgraphia [Not Recovered/Not Resolved]
  - Nausea [Not Recovered/Not Resolved]
  - Hallucination [Recovering/Resolving]
